FAERS Safety Report 5979066-3 (Version None)
Quarter: 2008Q4

REPORT INFORMATION
  Report Type: 
  Country: None (occurrence: None)
  Receive Date: 20081204
  Receipt Date: 20080520
  Transmission Date: 20090506
  Serious: No
  Sender: FDA-Public Use
  Company Number: US-ABBOTT-08P-163-0455707-00

PATIENT
  Age: 38 Year
  Sex: Female

DRUGS (3)
  1. TRICOR [Suspect]
     Indication: FAMILIAL HYPERTRIGLYCERIDAEMIA
  2. TRICOR [Suspect]
     Indication: BLOOD CHOLESTEROL INCREASED
  3. GEMFIBROZIL [Concomitant]
     Indication: DRUG USE FOR UNKNOWN INDICATION
     Dosage: NOT REPORTED

REACTIONS (5)
  - FATIGUE [None]
  - HEADACHE [None]
  - INSOMNIA [None]
  - MYALGIA [None]
  - PRURITUS [None]
